FAERS Safety Report 8051506-8 (Version None)
Quarter: 2012Q1

REPORT INFORMATION
  Report Type: 
  Country: None (occurrence: None)
  Receive Date: 20120117
  Receipt Date: 20120113
  Transmission Date: 20120608
  Serious: No
  Sender: FDA-Public Use
  Company Number: US-BAYER-2012-005102

PATIENT

DRUGS (2)
  1. ALEVE (CAPLET) [Suspect]
     Dosage: 1 DF,BID
     Route: 048
  2. COLACE [Concomitant]
     Dosage: UNK

REACTIONS (2)
  - ABDOMINAL DISCOMFORT [None]
  - HEADACHE [None]
